FAERS Safety Report 10585837 (Version 1)
Quarter: 2014Q4

REPORT INFORMATION
  Report Type: Spontaneous
  Country: FR (occurrence: None)
  Receive Date: 20141113
  Receipt Date: 20141113
  Transmission Date: 20150529
  Serious: Yes (Other)
  Sender: FDA-Public Use
  Company Number: CLINIGEN-003439

PATIENT
  Age: 56 Year
  Sex: Male

DRUGS (11)
  1. ADVAGRAF [Concomitant]
     Active Substance: TACROLIMUS
  2. FOSCAVIR [Suspect]
     Active Substance: FOSCARNET SODIUM
     Indication: CYTOMEGALOVIRUS INFECTION
     Route: 042
     Dates: start: 20140717, end: 20140721
  3. CYMEVAN [Concomitant]
     Active Substance: GANCICLOVIR
  4. LASILIX [Concomitant]
     Active Substance: FUROSEMIDE
  5. AMLOR [Concomitant]
     Active Substance: AMLODIPINE BESYLATE
  6. UVEDOSE [Concomitant]
     Active Substance: CHOLECALCIFEROL
  7. BACTRIM [Suspect]
     Active Substance: SULFAMETHOXAZOLE\TRIMETHOPRIM
     Indication: INTERSTITIAL LUNG DISEASE
     Route: 042
     Dates: start: 20140713, end: 20140724
  8. NOVORAPID [Concomitant]
     Active Substance: INSULIN ASPART
  9. LANTUS [Concomitant]
     Active Substance: INSULIN GLARGINE
  10. CORTANCYL [Concomitant]
     Active Substance: PREDNISONE
  11. ROVALCYTE [Concomitant]
     Active Substance: VALGANCICLOVIR HYDROCHLORIDE

REACTIONS (1)
  - Pancytopenia [None]

NARRATIVE: CASE EVENT DATE: 20140723
